FAERS Safety Report 9831152 (Version 2)
Quarter: 2014Q1

REPORT INFORMATION
  Report Type: Spontaneous
  Country: CH (occurrence: CH)
  Receive Date: 20140121
  Receipt Date: 20140204
  Transmission Date: 20141002
  Serious: Yes (Hospitalization, Other)
  Sender: FDA-Public Use
  Company Number: CH-009507513-1401CHE007329

PATIENT
  Age: 62 Year
  Sex: Female

DRUGS (11)
  1. JANUVIA [Suspect]
     Dosage: 1000 MG, ONCE
     Route: 048
     Dates: start: 20130806, end: 20130806
  2. REMERON SOLTAB [Suspect]
     Dosage: 150 MG, ONCE
     Route: 048
     Dates: start: 20130806, end: 20130806
  3. NALOXONE HYDROCHLORIDE (+) OXYCODONE HYDROCHLORIDE [Suspect]
     Dosage: 100 MG/50 MG, ONCE
     Route: 048
     Dates: start: 20130806, end: 20130806
  4. GLUCOPHAGE [Suspect]
     Dosage: 15 G, ONCE
     Route: 048
     Dates: start: 20130806, end: 20130806
  5. BISOPROLOL [Suspect]
     Dosage: 50 MG, ONCE
     Route: 048
     Dates: start: 20130806, end: 20130806
  6. AMILORIDE HYDROCHLORIDE (+) HYDROCHLOROTHIAZIDE [Suspect]
     Dosage: UNK, ONCE
     Route: 048
     Dates: start: 20130806, end: 20130806
  7. ENALAPRIL MALEATE [Suspect]
     Dosage: 200 MG, ONCE
     Route: 048
     Dates: start: 20130806, end: 20130806
  8. CLORAZEPATE DIPOTASSIUM [Suspect]
     Dosage: 100 MG, ONCE
     Route: 048
     Dates: start: 20130806, end: 20130806
  9. PIPAMPERONE [Suspect]
     Dosage: 400 MG, ONCE
     Route: 048
     Dates: start: 20130806, end: 20130806
  10. PANTOPRAZOLE [Suspect]
     Dosage: 400 MG, ONCE
     Route: 048
     Dates: start: 20130806, end: 20130806
  11. LORAZEPAM [Suspect]
     Dosage: 10 MG, ONCE
     Route: 048
     Dates: start: 20130806, end: 20130806

REACTIONS (9)
  - Suicide attempt [Recovered/Resolved]
  - Confusional state [Recovered/Resolved]
  - Miosis [Recovered/Resolved]
  - Hyporeflexia [Recovered/Resolved]
  - Atrioventricular block first degree [Recovered/Resolved]
  - Metabolic acidosis [Recovered/Resolved]
  - Somnolence [Recovered/Resolved]
  - Vomiting [Recovered/Resolved]
  - Overdose [Unknown]
